FAERS Safety Report 20059568 (Version 16)
Quarter: 2022Q1

REPORT INFORMATION
  Report Type: Report from Study
  Country: CN (occurrence: None)
  Receive Date: 20211111
  Receipt Date: 20220223
  Transmission Date: 20220423
  Serious: Yes (Hospitalization)
  Sender: FDA-Public Use
  Company Number: CN-Eisai Medical Research-EC-2021-102985

PATIENT
  Age: 50 Year
  Sex: Female
  Weight: 54 kg

DRUGS (17)
  1. LENVATINIB [Suspect]
     Active Substance: LENVATINIB
     Indication: Non-small cell lung cancer metastatic
     Route: 048
     Dates: start: 20210827
  2. PEMBROLIZUMAB [Suspect]
     Active Substance: PEMBROLIZUMAB
     Indication: Non-small cell lung cancer metastatic
     Route: 041
     Dates: start: 20210827, end: 20210827
  3. PEMBROLIZUMAB [Suspect]
     Active Substance: PEMBROLIZUMAB
     Route: 041
     Dates: start: 20210917, end: 20210917
  4. PEMBROLIZUMAB [Suspect]
     Active Substance: PEMBROLIZUMAB
     Route: 041
     Dates: start: 20211011, end: 20211011
  5. PEMBROLIZUMAB [Suspect]
     Active Substance: PEMBROLIZUMAB
     Route: 041
     Dates: start: 20211101, end: 20211101
  6. PEMETREXED [Suspect]
     Active Substance: PEMETREXED
     Indication: Non-small cell lung cancer metastatic
     Route: 041
     Dates: start: 20210827, end: 20210827
  7. PEMETREXED [Suspect]
     Active Substance: PEMETREXED
     Route: 041
     Dates: start: 20210917, end: 20210917
  8. PEMETREXED [Suspect]
     Active Substance: PEMETREXED
     Route: 041
     Dates: start: 20211011, end: 20211011
  9. PEMETREXED [Suspect]
     Active Substance: PEMETREXED
     Route: 041
     Dates: start: 20211101, end: 20211101
  10. PEMETREXED [Suspect]
     Active Substance: PEMETREXED
     Route: 041
     Dates: start: 20220107
  11. CARBOPLATIN [Suspect]
     Active Substance: CARBOPLATIN
     Indication: Non-small cell lung cancer metastatic
     Dosage: AREA UNDER THE CURVE (AUC) 5 MG/ML/MIN
     Route: 041
     Dates: start: 20210827, end: 20210827
  12. CARBOPLATIN [Suspect]
     Active Substance: CARBOPLATIN
     Dosage: AREA UNDER THE CURVE (AUC) 5 MG/ML/MIN
     Route: 041
     Dates: start: 20210917, end: 20210917
  13. CARBOPLATIN [Suspect]
     Active Substance: CARBOPLATIN
     Dosage: AREA UNDER THE CURVE (AUC) 5 MG/ML/MIN
     Route: 041
     Dates: start: 20211011, end: 20211011
  14. CARBOPLATIN [Suspect]
     Active Substance: CARBOPLATIN
     Dosage: AREA UNDER THE CURVE (AUC) 5 MG/ML/MIN
     Route: 041
     Dates: start: 20211101, end: 20211101
  15. CODEINE PHOSPHATE [Concomitant]
     Active Substance: CODEINE PHOSPHATE
     Dates: start: 20210816
  16. CODEINE PHOSPHATE [Concomitant]
     Active Substance: CODEINE PHOSPHATE
     Dates: start: 20210810
  17. MINERALS\VITAMINS [Concomitant]
     Active Substance: MINERALS\VITAMINS
     Dates: start: 20210817

REACTIONS (3)
  - Aspartate aminotransferase increased [Recovered/Resolved]
  - Alanine aminotransferase increased [Recovered/Resolved]
  - Nausea [Recovered/Resolved]

NARRATIVE: CASE EVENT DATE: 20211008
